FAERS Safety Report 9146564 (Version 2)
Quarter: 2013Q3

REPORT INFORMATION
  Report Type: Spontaneous
  Country: JP (occurrence: JP)
  Receive Date: 20130307
  Receipt Date: 20130904
  Transmission Date: 20140515
  Serious: Yes (Other)
  Sender: FDA-Public Use
  Company Number: JP-JNJFOC-20130100104

PATIENT
  Age: 30 Year
  Sex: Female
  Weight: 49 kg

DRUGS (6)
  1. REMICADE [Suspect]
     Indication: CROHN^S DISEASE
     Route: 042
     Dates: start: 20121109
  2. REMICADE [Suspect]
     Indication: CROHN^S DISEASE
     Route: 042
     Dates: start: 20121226
  3. REMICADE [Suspect]
     Indication: CROHN^S DISEASE
     Route: 042
     Dates: start: 20090718
  4. REMICADE [Suspect]
     Indication: CROHN^S DISEASE
     Route: 042
     Dates: start: 20130214, end: 20130214
  5. PENTASA [Concomitant]
     Indication: CROHN^S DISEASE
     Route: 048
     Dates: start: 20081020
  6. BIOFERMIN [Concomitant]
     Indication: PROBIOTIC THERAPY
     Dosage: 2 TAB
     Route: 048
     Dates: start: 20081020

REACTIONS (3)
  - Influenza [Unknown]
  - Exposure during pregnancy [Not Recovered/Not Resolved]
  - Haemoglobin decreased [Unknown]
